FAERS Safety Report 19595084 (Version 2)
Quarter: 2021Q3

REPORT INFORMATION
  Report Type: Spontaneous
  Country: US (occurrence: US)
  Receive Date: 20210723
  Receipt Date: 20210815
  Transmission Date: 20211014
  Serious: No
  Sender: FDA-Public Use
  Company Number: US-ORGANON-O2107USA001482

PATIENT
  Sex: Female

DRUGS (2)
  1. NEXPLANON [Suspect]
     Active Substance: ETONOGESTREL
     Indication: CONTRACEPTION
     Dosage: 68 MILLIGRAM, ONCE, LEFT ARM
     Route: 059
     Dates: start: 2013
  2. NEXPLANON [Suspect]
     Active Substance: ETONOGESTREL
     Dosage: IMPLANT, RIGHT ARM
     Route: 059
     Dates: start: 2016, end: 2019

REACTIONS (9)
  - Paraesthesia [Not Recovered/Not Resolved]
  - Pain in extremity [Not Recovered/Not Resolved]
  - Device placement issue [Not Recovered/Not Resolved]
  - Device issue [Not Recovered/Not Resolved]
  - Incorrect product administration duration [Unknown]
  - Hypoaesthesia [Not Recovered/Not Resolved]
  - Complication associated with device [Recovered/Resolved]
  - Overdose [Unknown]
  - Device use issue [Unknown]

NARRATIVE: CASE EVENT DATE: 2013
